FAERS Safety Report 20083919 (Version 1)
Quarter: 2021Q4

REPORT INFORMATION
  Report Type: Spontaneous
  Country: US (occurrence: US)
  Receive Date: 20211118
  Receipt Date: 20211118
  Transmission Date: 20220303
  Serious: Yes (Hospitalization, Other)
  Sender: FDA-Public Use
  Company Number: US-SA-SAC20211117000042

PATIENT

DRUGS (1)
  1. PLAVIX [Suspect]
     Active Substance: CLOPIDOGREL BISULFATE

REACTIONS (5)
  - Renal tubular necrosis [Recovered/Resolved]
  - Pseudomonal bacteraemia [Recovered/Resolved]
  - Ventricular arrhythmia [Recovered/Resolved]
  - Haematuria [Recovered/Resolved]
  - Embolism [Unknown]

NARRATIVE: CASE EVENT DATE: 20210804
